FAERS Safety Report 9555144 (Version 1)
Quarter: 2013Q3

REPORT INFORMATION
  Report Type: Spontaneous
  Country: DE (occurrence: None)
  Receive Date: 20130808
  Receipt Date: 20130808
  Transmission Date: 20140515
  Serious: Yes (Hospitalization)
  Sender: FDA-Public Use
  Company Number: E2B_00000934

PATIENT
  Age: 76 Year
  Sex: Female

DRUGS (5)
  1. RAMIPRIL [Suspect]
     Indication: CARDIOMYOPATHY
     Route: 048
  2. SPIRONOLACTONE (UNKNOWN) [Suspect]
     Indication: CARDIOMYOPATHY
     Route: 048
     Dates: start: 201210
  3. DABIGATRAN [Suspect]
     Indication: ATRIAL FIBRILLATION
     Dosage: 220 MG (110 MG,2 IN 1 D)
     Route: 048
     Dates: start: 201301, end: 20130219
  4. TORASEMIDE (TORASEMID) [Concomitant]
  5. ACETYSALICYLIC ACID [Concomitant]

REACTIONS (3)
  - Haemoglobin decreased [None]
  - International normalised ratio increased [None]
  - Blood creatinine increased [None]
